FAERS Safety Report 16866024 (Version 1)
Quarter: 2019Q3

REPORT INFORMATION
  Report Type: Spontaneous
  Country: US (occurrence: US)
  Receive Date: 20190930
  Receipt Date: 20190930
  Transmission Date: 20191005
  Serious: No
  Sender: FDA-Public Use
  Company Number: US-ALLERGAN-1922483US

PATIENT
  Age: 21 Year
  Sex: Male

DRUGS (5)
  1. ABILIFY [Concomitant]
     Active Substance: ARIPIPRAZOLE
     Dosage: 2 MG, QHS
     Route: 048
     Dates: start: 20190603
  2. ABILIFY [Concomitant]
     Active Substance: ARIPIPRAZOLE
     Indication: AFFECTIVE DISORDER
     Dosage: 4 MG, QHS
     Route: 048
     Dates: start: 201906
  3. VRAYLAR [Suspect]
     Active Substance: CARIPRAZINE
     Indication: AFFECTIVE DISORDER
     Dosage: 3 MG, QD
     Route: 048
     Dates: start: 20190522, end: 20190603
  4. VRAYLAR [Suspect]
     Active Substance: CARIPRAZINE
     Dosage: 1.5 MG, QD
     Route: 048
     Dates: start: 20190423
  5. TRAZODONE [Concomitant]
     Active Substance: TRAZODONE HYDROCHLORIDE
     Indication: INSOMNIA
     Dosage: 50 MG (1/2-2 TABS QHS)
     Route: 048

REACTIONS (1)
  - Back pain [Unknown]

NARRATIVE: CASE EVENT DATE: 20190603
